FAERS Safety Report 9357930 (Version 3)
Quarter: 2013Q4

REPORT INFORMATION
  Report Type: Spontaneous
  Country: BR (occurrence: BR)
  Receive Date: 20130620
  Receipt Date: 20131018
  Transmission Date: 20140711
  Serious: Yes (Other)
  Sender: FDA-Public Use
  Company Number: BR-ASTRAZENECA-2013SE46696

PATIENT
  Age: 81 Year
  Sex: Male
  Weight: 58 kg

DRUGS (8)
  1. ATENOL [Suspect]
     Indication: ARRHYTHMIA
     Route: 048
     Dates: start: 2003
  2. ATENOL [Suspect]
     Indication: HYPERTENSION
     Route: 048
     Dates: start: 2003
  3. ATENOL [Suspect]
     Indication: ARRHYTHMIA
     Route: 048
     Dates: start: 2003
  4. ATENOL [Suspect]
     Indication: HYPERTENSION
     Route: 048
     Dates: start: 2003
  5. ATENOL [Suspect]
     Indication: ARRHYTHMIA
     Route: 048
     Dates: start: 2003
  6. ATENOL [Suspect]
     Indication: HYPERTENSION
     Route: 048
     Dates: start: 2003
  7. CRESTOR [Suspect]
     Indication: HYPERCHOLESTEROLAEMIA
     Route: 048
     Dates: start: 2003
  8. ASPIRINA PREVENT [Concomitant]

REACTIONS (9)
  - Myocardial ischaemia [Recovered/Resolved]
  - Influenza [Not Recovered/Not Resolved]
  - Arrhythmia [Not Recovered/Not Resolved]
  - Oedema mouth [Recovered/Resolved]
  - Swollen tongue [Recovered/Resolved]
  - Feeling cold [Not Recovered/Not Resolved]
  - Dry mouth [Not Recovered/Not Resolved]
  - Off label use [Not Recovered/Not Resolved]
  - Circumstance or information capable of leading to medication error [Recovered/Resolved]
